FAERS Safety Report 6177613-2 (Version None)
Quarter: 2009Q2

REPORT INFORMATION
  Report Type: 
  Country: None (occurrence: None)
  Receive Date: 20090501
  Receipt Date: 20090501
  Transmission Date: 20091009
  Serious: No
  Sender: FDA-Public Use
  Company Number: None

PATIENT
  Age: 49 Year
  Sex: Female
  Weight: 60 kg

DRUGS (5)
  1. LANTUS [Suspect]
     Indication: DIABETIC KETOACIDOSIS
     Dosage: 50 UNITS SQ X 1
     Route: 058
     Dates: start: 20090303
  2. LANTUS [Suspect]
     Indication: DIABETIC KETOACIDOSIS
     Dosage: 15 UNITS SQ X 1
     Route: 058
     Dates: start: 20090304
  3. HEPARIN [Concomitant]
  4. CEFEPIME [Concomitant]
  5. VANCOMYCIN HCL [Concomitant]

REACTIONS (3)
  - BLOOD GLUCOSE DECREASED [None]
  - BLOOD GLUCOSE INCREASED [None]
  - RESTLESSNESS [None]
